FAERS Safety Report 9363465 (Version 1)
Quarter: 2013Q2

REPORT INFORMATION
  Report Type: Report from Study
  Country: TR (occurrence: TR)
  Receive Date: 20130624
  Receipt Date: 20130624
  Transmission Date: 20140414
  Serious: Yes (Death)
  Sender: FDA-Public Use
  Company Number: TR-MPIJNJ-2013-04637

PATIENT
  Sex: 0

DRUGS (6)
  1. VELCADE [Suspect]
     Indication: PLASMA CELL MYELOMA
     Dosage: UNK
     Route: 065
     Dates: start: 20120214
  2. LENALIDOMIDE [Concomitant]
     Indication: PLASMA CELL MYELOMA
     Dosage: UNK
     Dates: start: 20120214
  3. DEXAMETHASONE [Concomitant]
     Indication: PLASMA CELL MYELOMA
     Dosage: UNK
     Dates: start: 20120214
  4. BACTRIM [Concomitant]
     Dosage: UNK
     Dates: start: 20120213
  5. ZOMETA [Concomitant]
     Dosage: UNK
     Dates: start: 20070711
  6. CLEXANE [Concomitant]
     Dosage: UNK
     Dates: start: 20120213

REACTIONS (1)
  - Death [Fatal]
